FAERS Safety Report 7891280-9 (Version None)
Quarter: 2011Q4

REPORT INFORMATION
  Report Type: 
  Country: None (occurrence: None)
  Receive Date: 20111103
  Receipt Date: 20110801
  Transmission Date: 20120403
  Serious: No
  Sender: FDA-Public Use
  Company Number: US-AMGEN-USASP2011039054

PATIENT
  Sex: Female

DRUGS (8)
  1. METHOTREXATE [Concomitant]
     Dosage: UNK
  2. PROZAC [Concomitant]
     Dosage: UNK
  3. ENBREL [Suspect]
     Indication: RHEUMATOID ARTHRITIS
     Dosage: 50 MG, QWK
     Dates: start: 20100101
  4. HYDROCHLOROTHIAZIDE [Concomitant]
     Dosage: UNK
  5. MOTRIN [Concomitant]
     Dosage: UNK
  6. NEURONTIN [Concomitant]
     Dosage: UNK
  7. TRAZODONE HYDROCHLORIDE [Concomitant]
     Dosage: UNK
  8. FOLIC ACID [Concomitant]
     Dosage: UNK

REACTIONS (6)
  - OROPHARYNGEAL BLISTERING [None]
  - CANDIDIASIS [None]
  - INJECTION SITE ERYTHEMA [None]
  - INJECTION SITE PRURITUS [None]
  - INJECTION SITE SWELLING [None]
  - INJECTION SITE REACTION [None]
